FAERS Safety Report 9422776 (Version 1)
Quarter: 2013Q3

REPORT INFORMATION
  Report Type: Spontaneous
  Country: US (occurrence: US)
  Receive Date: 20130726
  Receipt Date: 20130726
  Transmission Date: 20140515
  Serious: No
  Sender: FDA-Public Use
  Company Number: US-MYLANLABS-2013S1010231

PATIENT
  Sex: Male

DRUGS (1)
  1. HALOPERIDOL TABLETS, USP [Suspect]

REACTIONS (2)
  - Tremor [Recovered/Resolved]
  - Akathisia [Recovered/Resolved]
